FAERS Safety Report 7828952-8 (Version None)
Quarter: 2011Q4

REPORT INFORMATION
  Report Type: 
  Country: None (occurrence: None)
  Receive Date: 20111020
  Receipt Date: 20100730
  Transmission Date: 20120403
  Serious: No
  Sender: FDA-Public Use
  Company Number: US-BAYER-201030344NA

PATIENT
  Age: 46 Year
  Sex: Male
  Weight: 84.545 kg

DRUGS (3)
  1. BARIUM [Concomitant]
     Indication: COMPUTERISED TOMOGRAM ABDOMEN
     Route: 048
     Dates: start: 20100730, end: 20100730
  2. ULTRAVIST 150 [Suspect]
     Indication: COMPUTERISED TOMOGRAM ABDOMEN
     Dosage: UNSPECIFIED INJECTION SITE USING POWER INJECTOR @ A RATE OF 1.5 CC/SECOND AND WARMER
     Route: 042
     Dates: start: 20100730, end: 20100730
  3. LEVAQUIN [Concomitant]

REACTIONS (2)
  - DIZZINESS [None]
  - NAUSEA [None]
